FAERS Safety Report 6537647-2 (Version None)
Quarter: 2010Q1

REPORT INFORMATION
  Report Type: 
  Country: None (occurrence: None)
  Receive Date: 20100114
  Receipt Date: 20100108
  Transmission Date: 20100710
  Serious: Yes (Other)
  Sender: FDA-Public Use
  Company Number: B0609663A

PATIENT
  Sex: Female

DRUGS (8)
  1. VALTREX [Suspect]
     Indication: HERPES ZOSTER
     Dosage: 1000MG THREE TIMES PER DAY
     Route: 048
     Dates: start: 20091124, end: 20091126
  2. BLOPRESS [Concomitant]
     Indication: HYPERTENSION
     Route: 048
     Dates: start: 20060201, end: 20091126
  3. ADALAT CC [Concomitant]
     Indication: HYPERTENSION
     Route: 048
     Dates: start: 20081112, end: 20091126
  4. INDERAL [Concomitant]
     Indication: HYPERTENSION
     Route: 048
     Dates: start: 20041113, end: 20081126
  5. EBRANTIL [Concomitant]
     Indication: HYPERTENSION
     Route: 048
     Dates: start: 20041122, end: 20091126
  6. ARGAMATE [Concomitant]
     Route: 048
     Dates: start: 20080724, end: 20091126
  7. MAGLAX [Concomitant]
     Indication: CONSTIPATION
     Route: 048
     Dates: start: 20091125, end: 20091126
  8. INFLUENZA HA VACCINE [Concomitant]
     Route: 058
     Dates: start: 20091125, end: 20091125

REACTIONS (3)
  - ALTERED STATE OF CONSCIOUSNESS [None]
  - ENCEPHALOPATHY [None]
  - RENAL FAILURE [None]
